FAERS Safety Report 7866604-9 (Version None)
Quarter: 2011Q4

REPORT INFORMATION
  Report Type: 
  Country: None (occurrence: None)
  Receive Date: 20111028
  Receipt Date: 20110713
  Transmission Date: 20120403
  Serious: No
  Sender: FDA-Public Use
  Company Number: US-GLAXOSMITHKLINE-A0936671A

PATIENT
  Age: 60 Year
  Sex: Female

DRUGS (7)
  1. METFORMIN HCL [Concomitant]
  2. RELPAX [Concomitant]
  3. LEVOTHYROXINE SODIUM [Concomitant]
  4. GLYBURIDE [Concomitant]
  5. PRILOSEC [Concomitant]
  6. VITAMIN TAB [Concomitant]
  7. ADVAIR DISKUS 100/50 [Suspect]
     Indication: COUGH
     Dosage: 1PUFF TWICE PER DAY
     Route: 055
     Dates: start: 20110706

REACTIONS (9)
  - FUNGAL SKIN INFECTION [None]
  - PRODUCT QUALITY ISSUE [None]
  - ORAL FUNGAL INFECTION [None]
  - THROAT IRRITATION [None]
  - APHONIA [None]
  - TREATMENT NONCOMPLIANCE [None]
  - DRUG INEFFECTIVE [None]
  - OROPHARYNGEAL DISCOMFORT [None]
  - COUGH [None]
